FAERS Safety Report 17973374 (Version 1)
Quarter: 2020Q3

REPORT INFORMATION
  Report Type: Spontaneous
  Country: US (occurrence: US)
  Receive Date: 20200701
  Receipt Date: 20200701
  Transmission Date: 20201103
  Serious: Yes (Hospitalization)
  Sender: FDA-Public Use
  Company Number: None

PATIENT
  Age: 87 Year
  Sex: Male

DRUGS (1)
  1. XGEVA [Suspect]
     Active Substance: DENOSUMAB
     Indication: PROSTATE CANCER
     Dosage: FREQUENCY:; EVERY 4 WEEKS
     Route: 058
     Dates: start: 20200326

REACTIONS (1)
  - Cystitis [None]

NARRATIVE: CASE EVENT DATE: 20200626
